FAERS Safety Report 6333514-8 (Version None)
Quarter: 2009Q3

REPORT INFORMATION
  Report Type: 
  Country: None (occurrence: None)
  Receive Date: 20090828
  Receipt Date: 20090824
  Transmission Date: 20100115
  Serious: Yes (Other)
  Sender: FDA-Public Use
  Company Number: JP-GENENTECH-289190

PATIENT
  Sex: Male

DRUGS (5)
  1. RITUXAN [Suspect]
     Indication: LYMPHOMA
     Dosage: UNK
     Route: 042
     Dates: start: 20090309
  2. DOXORUBICIN HCL [Concomitant]
     Indication: LYMPHOMA
  3. CYCLOPHOSPHAMIDE [Concomitant]
     Indication: LYMPHOMA
  4. VINCRISTINE [Concomitant]
     Indication: LYMPHOMA
  5. PREDNISOLONE [Concomitant]
     Indication: LYMPHOMA

REACTIONS (2)
  - HYPOGAMMAGLOBULINAEMIA [None]
  - POLYARTHRITIS [None]
